FAERS Safety Report 20488572 (Version 1)
Quarter: 2022Q1

REPORT INFORMATION
  Report Type: Spontaneous
  Country: US (occurrence: US)
  Receive Date: 20220218
  Receipt Date: 20220218
  Transmission Date: 20220423
  Serious: No
  Sender: FDA-Public Use
  Company Number: US-BAYER-2022A023676

PATIENT

DRUGS (1)
  1. CLARITIN [Suspect]
     Active Substance: LORATADINE
     Indication: Allergy to animal
     Dosage: 1 DF, QD
     Route: 065

REACTIONS (2)
  - Sneezing [Unknown]
  - Dyspnoea [Unknown]
